FAERS Safety Report 9403123 (Version 2)
Quarter: 2013Q4

REPORT INFORMATION
  Report Type: Spontaneous
  Country: US (occurrence: US)
  Receive Date: 20130716
  Receipt Date: 20131009
  Transmission Date: 20140711
  Serious: Yes (Death)
  Sender: FDA-Public Use
  Company Number: US-GLAXOSMITHKLINE-A1033603A

PATIENT
  Age: 64 Year
  Sex: Male

DRUGS (12)
  1. VOTRIENT [Suspect]
     Indication: PANCREATIC CARCINOMA
     Dosage: 800MG PER DAY
     Route: 048
     Dates: start: 20130508
  2. ENOXAPARIN [Concomitant]
  3. CIPRO [Concomitant]
  4. LORAZEPAM [Concomitant]
  5. WARFARIN SODIUM [Concomitant]
  6. OXYCODONE [Concomitant]
  7. COLACE [Concomitant]
  8. ZANTAC [Concomitant]
  9. CO-Q10 [Concomitant]
  10. ZINC [Concomitant]
  11. ULTRA MEGA VITAMINS [Concomitant]
  12. LOSARTAN [Concomitant]

REACTIONS (1)
  - Disease progression [Fatal]
